FAERS Safety Report 5099966-9 (Version None)
Quarter: 2006Q3

REPORT INFORMATION
  Report Type: 
  Country: None (occurrence: None)
  Receive Date: 20060906
  Receipt Date: 20060822
  Transmission Date: 20061208
  Serious: Yes (Hospitalization)
  Sender: FDA-Public Use
  Company Number: 2006JP002895

PATIENT
  Age: 76 Year
  Sex: Female
  Weight: 48.2 kg

DRUGS (9)
  1. TACROLIMUS CAPSULES (TACROLIMUS CAPSULES) [Suspect]
     Indication: RHEUMATOID ARTHRITIS
     Dosage: 1 MG, UNKNOWN/D, ORAL
     Route: 048
     Dates: start: 20060111
  2. PREDNISOLONE [Suspect]
     Indication: RHEUMATOID ARTHRITIS
     Dosage: 3 MG, UNKNOWN/D, ORAL
     Route: 048
  3. CALONAL [Concomitant]
  4. MAGMITT (MAGNESIUM OXIDE) [Concomitant]
  5. GASLON (IRSOGLADINE MALEATE) [Concomitant]
  6. LEVOFLOXACIN [Concomitant]
  7. GASMOTIN (MOSAPRIDE CITRATE) [Concomitant]
  8. MEILAX (ETHYL LOFLAZEPATE) [Concomitant]
  9. TETRAMIDE (MIANSERIN HYDROCHLORIDE) [Concomitant]

REACTIONS (2)
  - ADJUSTMENT DISORDER [None]
  - PYELONEPHRITIS [None]
